FAERS Safety Report 7312571-6 (Version None)
Quarter: 2011Q1

REPORT INFORMATION
  Report Type: 
  Country: None (occurrence: None)
  Receive Date: 20110224
  Receipt Date: 20100901
  Transmission Date: 20110831
  Serious: Yes (Life-Threatening)
  Sender: FDA-Public Use
  Company Number: PHFR2010GB06170

PATIENT
  Age: 22 Year
  Sex: Female

DRUGS (14)
  1. ETOPOPHOS PRESERVATIVE FREE [Suspect]
     Dosage: UNK
     Route: 042
     Dates: start: 20070915
  2. NORETHISTERONE [Suspect]
     Dosage: 15 MG, TID
  3. ACETAMINOPHEN [Suspect]
     Dosage: UNK DF, UNK
     Route: 042
  4. TAZOCIN [Suspect]
     Dosage: 4.5 MG, TID
     Route: 042
  5. OMEPRAZOLE [Suspect]
     Dosage: UNK DF, UNK
  6. ACICLOVIR [Suspect]
     Dosage: UNK
  7. MORPHINE [Suspect]
     Dosage: UNK DF, UNK
     Route: 042
  8. VORICONAZOLE [Suspect]
     Dosage: 200 MG, BID
  9. CICLOSPORIN [Suspect]
     Indication: BONE MARROW TRANSPLANT
     Dosage: UNK
  10. ALLOPURINOL [Suspect]
     Dosage: UNK
     Route: 048
  11. CHLORPHENAMINE [Suspect]
     Dosage: 10 MG, QID
     Route: 042
  12. CASPOFUNGIN [Suspect]
     Dosage: 70 MG, QD
     Route: 042
  13. KETALAR [Suspect]
     Indication: PAIN
     Dosage: UNK
     Dates: start: 20070921, end: 20070928
  14. ONDANSETRON [Suspect]
     Dosage: 8 MG, TID

REACTIONS (5)
  - BLOOD ALKALINE PHOSPHATASE INCREASED [None]
  - DILATATION INTRAHEPATIC DUCT ACQUIRED [None]
  - ALANINE AMINOTRANSFERASE INCREASED [None]
  - LIVER FUNCTION TEST ABNORMAL [None]
  - BLOOD BILIRUBIN INCREASED [None]
